FAERS Safety Report 11722568 (Version 3)
Quarter: 2016Q3

REPORT INFORMATION
  Report Type: Report from Study
  Country: US (occurrence: US)
  Receive Date: 20151111
  Receipt Date: 20160929
  Transmission Date: 20161109
  Serious: Yes (Other)
  Sender: FDA-Public Use
  Company Number: PHHY2015US003249

PATIENT
  Age: 51 Year
  Sex: Female

DRUGS (13)
  1. ALOE VERA [Concomitant]
     Active Substance: ALOE VERA LEAF
     Indication: ROUTINE HEALTH MAINTENANCE
     Dosage: 470 MG, QD
     Route: 048
     Dates: start: 20130808
  2. VITAMIN D [Concomitant]
     Active Substance: CHOLECALCIFEROL
     Indication: VITAMIN D DEFICIENCY
     Dosage: 2000 IU, QD
     Route: 048
     Dates: start: 20110422
  3. VITAMIN B12 [Concomitant]
     Active Substance: CYANOCOBALAMIN
     Indication: ROUTINE HEALTH MAINTENANCE
     Dosage: 500 UG, QD
     Route: 048
     Dates: start: 20120810
  4. HYDROCORTISONE BUTYRATE. [Concomitant]
     Active Substance: HYDROCORTISONE BUTYRATE
     Indication: RASH
     Dosage: 0.1 %, QD
     Route: 061
     Dates: start: 20130808
  5. BIOTIN [Concomitant]
     Active Substance: BIOTIN
     Indication: PROPHYLAXIS
     Dosage: UNK
     Route: 065
     Dates: start: 20150713
  6. FISH OIL [Concomitant]
     Active Substance: FISH OIL
     Indication: ROUTINE HEALTH MAINTENANCE
     Dosage: 1000 MG, QD
     Route: 048
     Dates: start: 20130808
  7. GILENYA [Suspect]
     Active Substance: FINGOLIMOD HYDROCHLORIDE
     Indication: MULTIPLE SCLEROSIS
     Dosage: UNK
     Route: 048
  8. COENZYME Q10 [Concomitant]
     Active Substance: UBIDECARENONE
     Indication: ROUTINE HEALTH MAINTENANCE
     Dosage: 30 MG, QD
     Route: 048
     Dates: start: 20110822
  9. UBIQUINOL [Concomitant]
     Active Substance: UBIQUINOL
     Indication: ROUTINE HEALTH MAINTENANCE
     Dosage: 200 MG, UNK
     Route: 048
     Dates: start: 20130808, end: 20140224
  10. COCONUT OIL [Concomitant]
     Active Substance: COCONUT OIL
     Indication: ROUTINE HEALTH MAINTENANCE
     Dosage: 1000 MG, QD
     Route: 048
     Dates: start: 20130805
  11. NYSTATIN. [Concomitant]
     Active Substance: NYSTATIN
     Indication: TINEA INFECTION
     Dosage: UNK
     Route: 061
     Dates: start: 20130930, end: 201403
  12. GABAPENTIN. [Concomitant]
     Active Substance: GABAPENTIN
     Indication: NYSTAGMUS
     Dosage: 300 MG, QD
     Route: 048
     Dates: start: 20120410
  13. MULTI VIT [Concomitant]
     Indication: ROUTINE HEALTH MAINTENANCE
     Dosage: UNK UNK, DU
     Route: 048
     Dates: start: 20130808, end: 20140707

REACTIONS (4)
  - Haemoglobin decreased [Recovered/Resolved]
  - Blood bilirubin increased [Unknown]
  - Basal cell carcinoma [Recovered/Resolved]
  - Haematocrit decreased [Recovered/Resolved]

NARRATIVE: CASE EVENT DATE: 20140304
